FAERS Safety Report 15957522 (Version 1)
Quarter: 2019Q1

REPORT INFORMATION
  Report Type: Spontaneous
  Country: CA (occurrence: CA)
  Receive Date: 20190213
  Receipt Date: 20190213
  Transmission Date: 20190417
  Serious: Yes (Hospitalization, Other)
  Sender: FDA-Public Use
  Company Number: CA-TAKEDA-2019TUS005605

PATIENT
  Sex: Female

DRUGS (5)
  1. METHYLPREDNISOLONE. [Concomitant]
     Active Substance: METHYLPREDNISOLONE
     Dosage: UNK
  2. ENTYVIO [Suspect]
     Active Substance: VEDOLIZUMAB
     Indication: COLITIS ULCERATIVE
     Dosage: UNK
     Route: 042
     Dates: start: 2015, end: 20181214
  3. SOLU-MEDROL [Concomitant]
     Active Substance: METHYLPREDNISOLONE SODIUM SUCCINATE
  4. TOFACITINIB [Concomitant]
     Active Substance: TOFACITINIB
     Dosage: UNK
  5. BUDESONIDE. [Concomitant]
     Active Substance: BUDESONIDE
     Dosage: UNK

REACTIONS (3)
  - Staphylococcal sepsis [Recovering/Resolving]
  - Colitis ulcerative [Unknown]
  - Catheter site infection [Recovering/Resolving]

NARRATIVE: CASE EVENT DATE: 20181227
